FAERS Safety Report 9218878 (Version 3)
Quarter: 2013Q2

REPORT INFORMATION
  Report Type: Spontaneous
  Country: JP (occurrence: JP)
  Receive Date: 20130409
  Receipt Date: 20130506
  Transmission Date: 20140414
  Serious: Yes (Hospitalization, Other)
  Sender: FDA-Public Use
  Company Number: JP-JNJFOC-20130400008

PATIENT
  Age: 8 Decade
  Sex: Female

DRUGS (7)
  1. RISPERDAL [Suspect]
     Indication: SCHIZOPHRENIA
     Route: 048
  2. AKINETON [Concomitant]
     Route: 065
  3. MAGNESIUM OXIDE [Concomitant]
     Route: 065
  4. PRIMPERAN [Concomitant]
     Route: 065
  5. GRAMALIL [Concomitant]
     Route: 048
  6. BENZALIN [Concomitant]
     Route: 048
  7. GASTER [Concomitant]
     Route: 065

REACTIONS (2)
  - Extradural haematoma [Not Recovered/Not Resolved]
  - Altered state of consciousness [Recovered/Resolved]
